FAERS Safety Report 22659691 (Version 1)
Quarter: 2023Q2

REPORT INFORMATION
  Report Type: Spontaneous
  Country: CN (occurrence: None)
  Receive Date: 20230630
  Receipt Date: 20230630
  Transmission Date: 20230722
  Serious: Yes (Hospitalization)
  Sender: FDA-Public Use
  Company Number: 2023A147221

PATIENT
  Age: 18162 Day
  Sex: Male
  Weight: 62 kg

DRUGS (1)
  1. OSIMERTINIB MESYLATE [Suspect]
     Active Substance: OSIMERTINIB MESYLATE
     Indication: Lung neoplasm malignant
     Route: 048
     Dates: start: 20230608, end: 20230609

REACTIONS (3)
  - Pericardial effusion [Recovering/Resolving]
  - Heart rate increased [Recovering/Resolving]
  - Pulse pressure increased [Recovering/Resolving]

NARRATIVE: CASE EVENT DATE: 20230609
